FAERS Safety Report 17808334 (Version 1)
Quarter: 2020Q2

REPORT INFORMATION
  Report Type: Spontaneous
  Country: GB (occurrence: GB)
  Receive Date: 20200520
  Receipt Date: 20200520
  Transmission Date: 20200714
  Serious: Yes (Other)
  Sender: FDA-Public Use
  Company Number: GB-ACCORD-182516

PATIENT
  Age: 16 Year
  Sex: Male
  Weight: 125 kg

DRUGS (12)
  1. LACTULOSE. [Concomitant]
     Active Substance: LACTULOSE
  2. MEROPENEM. [Concomitant]
     Active Substance: MEROPENEM
  3. SPIRONOLACTONE. [Concomitant]
     Active Substance: SPIRONOLACTONE
  4. PROPOFOL. [Concomitant]
     Active Substance: PROPOFOL
  5. LEVETIRACETAM. [Suspect]
     Active Substance: LEVETIRACETAM
     Indication: TONIC CONVULSION
     Route: 048
     Dates: start: 20200410, end: 20200421
  6. VANCOMYCIN [Concomitant]
     Active Substance: VANCOMYCIN
  7. MORPHINE [Concomitant]
     Active Substance: MORPHINE
  8. METARAMINOL [Concomitant]
     Active Substance: METARAMINOL
  9. DOCUSATE [Concomitant]
     Active Substance: DOCUSATE
  10. ENOXAPARIN [Concomitant]
     Active Substance: ENOXAPARIN
  11. OMEPRAZOLE. [Concomitant]
     Active Substance: OMEPRAZOLE
  12. FUROSEMIDE. [Concomitant]
     Active Substance: FUROSEMIDE

REACTIONS (3)
  - Chromaturia [Unknown]
  - Rhabdomyolysis [Unknown]
  - Blood creatine phosphokinase increased [Recovering/Resolving]

NARRATIVE: CASE EVENT DATE: 20200413
